FAERS Safety Report 8636979 (Version 3)
Quarter: 2012Q4

REPORT INFORMATION
  Report Type: 
  Country: BR (occurrence: BR)
  Receive Date: 20120626
  Receipt Date: 20121112
  Transmission Date: 20130627
  Serious: Yes (Hospitalization)
  Sender: FDA-Public Use
  Company Number: BR-PFIZER INC-2012152079

PATIENT
  Age: 62 Year
  Sex: Female

DRUGS (9)
  1. BENICAR HCT [Suspect]
     Indication: HYPERTENSION
     Dosage: 40/25 mg, 1x/day
     Route: 048
  2. BENICAR [Suspect]
     Indication: HYPERTENSION
     Dosage: 40 mg, 1x/day
     Route: 048
  3. SPIRONOLACTONE [Suspect]
     Indication: REFRACTORY HYPERTENSION
     Dosage: 25 mg
     Route: 048
     Dates: start: 20120604
  4. AMLODIPINE [Concomitant]
     Dosage: 5 mg, UNK
     Route: 065
  5. METFORMIN [Concomitant]
     Dosage: 500 mg, UNK
     Route: 065
  6. OMEPRAZOLE [Concomitant]
     Dosage: UNK
     Route: 065
  7. LEVOTHYROXINE SODIUM [Concomitant]
     Dosage: UNK
     Route: 065
  8. SERTRALINE [Concomitant]
     Dosage: UNK
     Route: 065
  9. ACETYLSALICYLIC ACID [Concomitant]
     Dosage: UNK
     Route: 065

REACTIONS (4)
  - Knee arthroplasty [Recovered/Resolved]
  - Overdose [Unknown]
  - Hypertension [Recovered/Resolved]
  - Weight decreased [Recovered/Resolved]
